FAERS Safety Report 13575512 (Version 1)
Quarter: 2017Q2

REPORT INFORMATION
  Report Type: Spontaneous
  Country: US (occurrence: US)
  Receive Date: 20170523
  Receipt Date: 20170523
  Transmission Date: 20170830
  Serious: Yes (Hospitalization)
  Sender: FDA-Public Use
  Company Number: None

PATIENT
  Sex: Male
  Weight: 110.68 kg

DRUGS (4)
  1. TRULICITY [Suspect]
     Active Substance: DULAGLUTIDE
     Indication: DIABETES MELLITUS INADEQUATE CONTROL
     Route: 058
     Dates: start: 20170216, end: 20170405
  2. LISINOPRIL. [Concomitant]
     Active Substance: LISINOPRIL
  3. MEVACOR [Concomitant]
     Active Substance: LOVASTATIN
  4. NOVOLOG MIX 70/30 PEN [Concomitant]

REACTIONS (1)
  - Portal venous gas [None]

NARRATIVE: CASE EVENT DATE: 20170405
